FAERS Safety Report 18241177 (Version 1)
Quarter: 2020Q3

REPORT INFORMATION
  Report Type: Spontaneous
  Country: US (occurrence: US)
  Receive Date: 20200906
  Receipt Date: 20200906
  Transmission Date: 20201103
  Serious: Yes (Hospitalization, Disabling)
  Sender: FDA-Public Use
  Company Number: None

PATIENT
  Age: 54 Year
  Sex: Male
  Weight: 123.75 kg

DRUGS (4)
  1. HEARING AID [Concomitant]
  2. LISINOPRIL. [Concomitant]
     Active Substance: LISINOPRIL
  3. OTEZLA [Suspect]
     Active Substance: APREMILAST
     Indication: PSORIASIS
     Dosage: ?          QUANTITY:1 TABLET(S);?
     Route: 048
     Dates: start: 20180905, end: 20200829
  4. ADVIL [Concomitant]
     Active Substance: IBUPROFEN

REACTIONS (13)
  - Restlessness [None]
  - Therapeutic product effect decreased [None]
  - Tinnitus [None]
  - Heart rate increased [None]
  - Hyperhidrosis [None]
  - Psoriasis [None]
  - Panic attack [None]
  - Emotional distress [None]
  - Anxiety [None]
  - Fatigue [None]
  - Fear [None]
  - Palpitations [None]
  - Dyspnoea [None]

NARRATIVE: CASE EVENT DATE: 20200826
